FAERS Safety Report 6583193-X (Version None)
Quarter: 2010Q1

REPORT INFORMATION
  Report Type: 
  Country: None (occurrence: None)
  Receive Date: 20100216
  Receipt Date: 20100211
  Transmission Date: 20100710
  Serious: Yes (Hospitalization)
  Sender: FDA-Public Use
  Company Number: AU-ROCHE-684942

PATIENT
  Sex: Male
  Weight: 64 kg

DRUGS (9)
  1. TAMIFLU [Suspect]
     Indication: DRUG USE FOR UNKNOWN INDICATION
     Route: 065
  2. BACTRIM [Suspect]
     Indication: DRUG USE FOR UNKNOWN INDICATION
     Dosage: DRUG REPORTED AS BACTRIM DS
     Route: 048
     Dates: start: 20090916, end: 20090922
  3. ADVIL [Concomitant]
  4. PARACETAMOL [Concomitant]
  5. STEMETIL [Concomitant]
  6. VOLTAREN [Concomitant]
  7. DOXYCYCLINE [Concomitant]
  8. METOPROLOL TARTRATE [Concomitant]
     Indication: ATRIAL FIBRILLATION
  9. CLEXANE [Concomitant]
     Indication: ATRIAL FIBRILLATION

REACTIONS (1)
  - ACUTE FEBRILE NEUTROPHILIC DERMATOSIS [None]
